FAERS Safety Report 5395607-1 (Version None)
Quarter: 2007Q3

REPORT INFORMATION
  Report Type: 
  Country: None (occurrence: None)
  Receive Date: 20070718
  Receipt Date: 20070221
  Transmission Date: 20080115
  Serious: Yes (Other)
  Sender: FDA-Public Use
  Company Number: 2006067986

PATIENT
  Age: 51 Year
  Sex: Male
  Weight: 188.7 kg

DRUGS (2)
  1. CELEBREX [Suspect]
     Indication: ARTHRITIS
     Dosage: 200 MG (200 MG,1 IN 1 D)
     Dates: start: 20011120
  2. VIOXX [Suspect]

REACTIONS (1)
  - MYOCARDIAL INFARCTION [None]
